FAERS Safety Report 7125609-6 (Version None)
Quarter: 2010Q4

REPORT INFORMATION
  Report Type: 
  Country: None (occurrence: None)
  Receive Date: 20101112
  Receipt Date: 20101028
  Transmission Date: 20110411
  Serious: Yes (Other)
  Sender: FDA-Public Use
  Company Number: 1000015950

PATIENT
  Age: 90 Year
  Sex: Female
  Weight: 44 kg

DRUGS (17)
  1. MEMANTINE [Suspect]
     Indication: AGITATION
     Dosage: 10 MG (5 MG,2 IN 1 D),ORAL
     Route: 048
     Dates: start: 20100111, end: 20100122
  2. MEMANTINE [Suspect]
     Indication: DRUG RESISTANCE
     Dosage: 10 MG (5 MG,2 IN 1 D),ORAL
     Route: 048
     Dates: start: 20100111, end: 20100122
  3. ACETAMINOPHEN (PARACETAMOL) (PARACETAMOL) [Concomitant]
  4. ACETYLSALICYLIC ACID SRT [Concomitant]
  5. BISOPROLOL FUMARATE [Concomitant]
  6. CALCIUM + VITAMIN D (CALCIUM, VITAMIN D) (CALCIUM, VITAMIN D) [Concomitant]
  7. CITALOPRAM (CITALOPRAM HYDROBROMIDE) (CITALOPRAM HYDROBROMIDE) [Concomitant]
  8. DOCUSATE SODIUM(DOCUSATE SODUM) (DOCUSATE SODIUM) [Concomitant]
  9. ERYTHROMYCIN (ERYTHROMYCIN) (0.5 PERCENT, OPHTHALMIC OINTMENT/CREAM) ( [Concomitant]
  10. FORZA-10 (FORZA-10) (FORZA-10) [Concomitant]
  11. HYDROCORTISONE ACETATE (HYDROCORTISONE ACETATE) (1 PERCENT, CREAM) (HY [Concomitant]
  12. LANSOPRAZOLE [Concomitant]
  13. NYSTATIN (NYSTATIN) (NYSTATIN) [Concomitant]
  14. RAMIPRIL [Concomitant]
  15. RISPERIDONE [Concomitant]
  16. WARFARIN SODIUM [Concomitant]
  17. CLONIDINE [Concomitant]

REACTIONS (2)
  - HYPERTENSION [None]
  - HYPOTENSION [None]
